FAERS Safety Report 24771261 (Version 1)
Quarter: 2024Q4

REPORT INFORMATION
  Report Type: Spontaneous
  Country: DE (occurrence: DE)
  Receive Date: 20241224
  Receipt Date: 20241224
  Transmission Date: 20250115
  Serious: Yes (Hospitalization)
  Sender: NOVO NORDISK
  Company Number: DE-NOVOPROD-1336025

PATIENT
  Age: 89 Year
  Sex: Male

DRUGS (2)
  1. ACTRAPID [Suspect]
     Active Substance: INSULIN HUMAN
     Indication: Type 2 diabetes mellitus
     Dosage: UNK
  2. LANTUS [Concomitant]
     Active Substance: INSULIN GLARGINE
     Dosage: UNK

REACTIONS (1)
  - Neoplasm malignant [Unknown]
